FAERS Safety Report 17901670 (Version 9)
Quarter: 2024Q4

REPORT INFORMATION
  Report Type: Spontaneous
  Country: PR (occurrence: PR)
  Receive Date: 20200616
  Receipt Date: 20241008
  Transmission Date: 20250114
  Serious: Yes (Other)
  Sender: PFIZER
  Company Number: PR-PFIZER INC-2020229832

PATIENT
  Age: 48 Year
  Sex: Female
  Weight: 82.54 kg

DRUGS (14)
  1. XELJANZ [Suspect]
     Active Substance: TOFACITINIB CITRATE
     Indication: Rheumatoid arthritis
     Dosage: 5 MG, 2X/DAY
     Route: 048
     Dates: start: 20120512
  2. XELJANZ [Suspect]
     Active Substance: TOFACITINIB CITRATE
     Dosage: 5 MG, 2X/DAY
     Route: 048
     Dates: end: 20200515
  3. XELJANZ [Suspect]
     Active Substance: TOFACITINIB CITRATE
     Dosage: 5 MG, 2X/DAY
     Route: 048
     Dates: start: 20240516
  4. XELJANZ [Suspect]
     Active Substance: TOFACITINIB CITRATE
     Dosage: 5 MG, 2X/DAY
     Route: 048
  5. XELJANZ [Suspect]
     Active Substance: TOFACITINIB CITRATE
     Dosage: 5 MG TABLET BID (TWO TIMES A DAY)
     Route: 048
     Dates: start: 20200515
  6. XELJANZ [Suspect]
     Active Substance: TOFACITINIB CITRATE
     Dosage: UNK
     Dates: end: 20240723
  7. SULINDAC [Concomitant]
     Active Substance: SULINDAC
     Dosage: UNK
  8. GABAPENTIN [Concomitant]
     Active Substance: GABAPENTIN
     Dosage: 800, BID (TWICE A DAY)
  9. MELOXICAM [Concomitant]
     Active Substance: MELOXICAM
     Dosage: UNK
  10. PHENOBARBITAL [Concomitant]
     Active Substance: PHENOBARBITAL
     Dosage: UNK
  11. AMITRIPTYLINE [Concomitant]
     Active Substance: AMITRIPTYLINE
     Dosage: UNK
  12. TEMAZEPAM [Concomitant]
     Active Substance: TEMAZEPAM
     Dosage: UNK
  13. PLAQUENIL [Concomitant]
     Active Substance: HYDROXYCHLOROQUINE SULFATE
     Dosage: UNK
  14. ESTAZOLAM [Concomitant]
     Active Substance: ESTAZOLAM
     Indication: Depression
     Dosage: 2, HS (AT BED TIME)

REACTIONS (12)
  - Skin laceration [Unknown]
  - Traumatic haemorrhage [Unknown]
  - Rectal haemorrhage [Recovered/Resolved]
  - Abdominal discomfort [Unknown]
  - Pain in extremity [Recovered/Resolved]
  - Neck pain [Recovered/Resolved]
  - Arthralgia [Recovered/Resolved]
  - Inflammation [Unknown]
  - Musculoskeletal stiffness [Not Recovered/Not Resolved]
  - Peripheral swelling [Unknown]
  - COVID-19 [Unknown]
  - Influenza [Not Recovered/Not Resolved]

NARRATIVE: CASE EVENT DATE: 20200501
